FAERS Safety Report 5598597-1 (Version None)
Quarter: 2008Q1

REPORT INFORMATION
  Report Type: 
  Country: None (occurrence: None)
  Receive Date: 20080122
  Receipt Date: 20080114
  Transmission Date: 20080703
  Serious: Yes (Other)
  Sender: FDA-Public Use
  Company Number: FR-ASTRAZENECA-2008CG00087

PATIENT
  Sex: Female

DRUGS (1)
  1. ZOMIGORO [Suspect]
     Route: 048

REACTIONS (1)
  - ANGINA UNSTABLE [None]
